FAERS Safety Report 16865493 (Version 2)
Quarter: 2019Q4

REPORT INFORMATION
  Report Type: Report from Study
  Country: None (occurrence: US)
  Receive Date: 20190930
  Receipt Date: 20191025
  Transmission Date: 20200122
  Serious: Yes (Other)
  Sender: FDA-Public Use
  Company Number: US-ABBVIE-19K-163-2943842-00

PATIENT
  Age: 15 Year
  Sex: Female

DRUGS (1)
  1. HUMIRA [Suspect]
     Active Substance: ADALIMUMAB
     Indication: HIDRADENITIS
     Dosage: CITRATE FREE
     Route: 058
     Dates: start: 201906, end: 2019

REACTIONS (9)
  - Skin lesion [Recovering/Resolving]
  - Infection [Recovering/Resolving]
  - Temporomandibular joint syndrome [Recovering/Resolving]
  - Sinusitis [Not Recovered/Not Resolved]
  - Swelling face [Recovering/Resolving]
  - Vascular rupture [Recovering/Resolving]
  - Insomnia [Recovering/Resolving]
  - Pyrexia [Recovering/Resolving]
  - Post procedural infection [Unknown]

NARRATIVE: CASE EVENT DATE: 201909
